FAERS Safety Report 18940097 (Version 1)
Quarter: 2021Q1

REPORT INFORMATION
  Report Type: Spontaneous
  Country: BE (occurrence: BE)
  Receive Date: 20210225
  Receipt Date: 20210225
  Transmission Date: 20210420
  Serious: Yes (Other)
  Sender: FDA-Public Use
  Company Number: BE-GLAXOSMITHKLINE-BE2021EME045048

PATIENT
  Age: 5 Year
  Sex: Male

DRUGS (2)
  1. FLUTICASONE. [Suspect]
     Active Substance: FLUTICASONE
     Indication: RESPIRATORY TRACT INFECTION
     Dosage: 500 UG, 1D
     Route: 055
  2. FLUTICASONE. [Suspect]
     Active Substance: FLUTICASONE
     Indication: ASTHMA

REACTIONS (5)
  - Short stature [Unknown]
  - Adrenal insufficiency [Unknown]
  - Cortisol decreased [Recovered/Resolved]
  - Growth retardation [Unknown]
  - Adrenocorticotropic hormone deficiency [Recovered/Resolved]
